FAERS Safety Report 14196196 (Version 1)
Quarter: 2017Q4

REPORT INFORMATION
  Report Type: Spontaneous
  Country: US (occurrence: None)
  Receive Date: 20171116
  Receipt Date: 20171116
  Transmission Date: 20180321
  Serious: No
  Sender: FDA-Public Use
  Company Number: None

PATIENT

DRUGS (1)
  1. URSODIOL 500MG TABLET [Suspect]
     Active Substance: URSODIOL
     Indication: BILE DUCT STONE
     Route: 048
     Dates: start: 20170302

REACTIONS (4)
  - Flatulence [None]
  - Back pain [None]
  - Functional gastrointestinal disorder [None]
  - Pain [None]

NARRATIVE: CASE EVENT DATE: 20170302
